FAERS Safety Report 7604516-6 (Version None)
Quarter: 2011Q3

REPORT INFORMATION
  Report Type: 
  Country: None (occurrence: None)
  Receive Date: 20110712
  Receipt Date: 20110708
  Transmission Date: 20111222
  Serious: Yes (Death, Other)
  Sender: FDA-Public Use
  Company Number: MA-ROXANE LABORATORIES, INC.-2011-RO-00966RO

PATIENT
  Age: 51 Year
  Sex: Female

DRUGS (4)
  1. CYCLOPHOSPHAMIDE [Suspect]
     Indication: VASCULITIS
  2. PREDNISONE [Suspect]
     Indication: VASCULITIS
     Dosage: 60 MG
     Route: 048
  3. PREDNISONE [Suspect]
     Dosage: 10 MG
     Route: 048
  4. METHYLPREDNISOLONE [Suspect]
     Indication: VASCULITIS

REACTIONS (5)
  - DISSEMINATED INTRAVASCULAR COAGULATION [None]
  - GENERAL PHYSICAL HEALTH DETERIORATION [None]
  - KAPOSI'S SARCOMA [None]
  - RENAL IMPAIRMENT [None]
  - HUMAN HERPES VIRUS 8 TEST POSITIVE [None]
